FAERS Safety Report 7194074-5 (Version None)
Quarter: 2010Q4

REPORT INFORMATION
  Report Type: 
  Country: None (occurrence: None)
  Receive Date: 20101124
  Receipt Date: 20100920
  Transmission Date: 20110411
  Serious: No
  Sender: FDA-Public Use
  Company Number: 017194

PATIENT
  Sex: Female
  Weight: 107 kg

DRUGS (4)
  1. LACOSAMIDE [Suspect]
     Indication: CONVULSION
     Dosage: (200 MG BID)
     Dates: start: 20100611, end: 20100820
  2. KEPPRA [Concomitant]
  3. DEPAKOTE ER [Concomitant]
  4. LAMICTAL [Concomitant]

REACTIONS (1)
  - CONVULSION [None]
